FAERS Safety Report 8282101-3 (Version None)
Quarter: 2012Q2

REPORT INFORMATION
  Report Type: 
  Country: None (occurrence: None)
  Receive Date: 20120413
  Receipt Date: 20120402
  Transmission Date: 20120825
  Serious: Yes (Other)
  Sender: FDA-Public Use
  Company Number: FR-BAYER-2012-032491

PATIENT
  Age: 74 Year
  Sex: Male

DRUGS (2)
  1. CIPROFLOXACIN HYDROCHLORIDE [Suspect]
     Indication: BACTERAEMIA
     Dosage: 200 MG, UNK
     Route: 042
     Dates: start: 20120220, end: 20120223
  2. BACTRIM DS [Suspect]
     Indication: BACTERAEMIA
     Dosage: 1 DF, BID
     Route: 048
     Dates: start: 20120223, end: 20120224

REACTIONS (1)
  - VASCULAR PURPURA [None]
